FAERS Safety Report 7835776 (Version 5)
Quarter: 2013Q3

REPORT INFORMATION
  Report Type: Spontaneous
  Country: US (occurrence: None)
  Receive Date: 20110202
  Receipt Date: 20130812
  Transmission Date: 20140515
  Serious: No
  Sender: FDA-Public Use
  Company Number: 2011-0214

PATIENT
  Age: 15 Year
  Sex: Male
  Weight: 53 kg

DRUGS (4)
  1. INCRELEX [Suspect]
     Indication: GROWTH RETARDATION
     Dosage: 94 UNITS (47 UNITS, 2 IN 1 D)
     Dates: start: 20090713
  2. METHOTREXATE [Concomitant]
  3. FOLIC ACID [Concomitant]
  4. SLOW IRON [Concomitant]

REACTIONS (3)
  - Aggression [None]
  - Adverse event [None]
  - Drug dose omission [None]
